FAERS Safety Report 9199406 (Version 1)
Quarter: 2013Q1

REPORT INFORMATION
  Report Type: Spontaneous
  Country: US (occurrence: US)
  Receive Date: 20130329
  Receipt Date: 20130329
  Transmission Date: 20140127
  Serious: No
  Sender: FDA-Public Use
  Company Number: US-B.I. PHARMACEUTICALS,INC./RIDGEFIELD-2013-BI-07792BP

PATIENT
  Sex: Female

DRUGS (3)
  1. MICARDIS HCT TABLETS [Suspect]
     Indication: HYPERTENSION
     Dates: start: 201203, end: 201303
  2. MICARDIS [Suspect]
     Indication: HYPERTENSION
     Dosage: 80 MG
     Route: 048
     Dates: start: 200803
  3. MICARDIS [Suspect]
     Dosage: 80 MG
     Route: 048
     Dates: start: 201303

REACTIONS (1)
  - Drug dispensing error [Recovered/Resolved]
